FAERS Safety Report 9000292 (Version 1)
Quarter: 2013Q1

REPORT INFORMATION
  Report Type: Spontaneous
  Country: GB (occurrence: GB)
  Receive Date: 20130107
  Receipt Date: 20130107
  Transmission Date: 20140127
  Serious: Yes (Disabling)
  Sender: FDA-Public Use
  Company Number: GB-RANBAXY-2012R1-63777

PATIENT
  Age: 60 Year
  Sex: Female
  Weight: 65.31 kg

DRUGS (2)
  1. AMOXICILLIN [Suspect]
     Indication: PRODUCT USED FOR UNKNOWN INDICATION
     Dosage: UNK
     Route: 065
     Dates: start: 20101004
  2. ARLEVERT [Suspect]
     Indication: DIZZINESS
     Dosage: UNK
     Route: 065
     Dates: start: 20101004

REACTIONS (3)
  - Pain [Recovered/Resolved]
  - Hypoacusis [Unknown]
  - Tinnitus [Not Recovered/Not Resolved]
